FAERS Safety Report 7028492-2 (Version None)
Quarter: 2010Q3

REPORT INFORMATION
  Report Type: 
  Country: None (occurrence: None)
  Receive Date: 20100818
  Receipt Date: 20100803
  Transmission Date: 20110219
  Serious: Yes (Hospitalization)
  Sender: FDA-Public Use
  Company Number: OMX-2010-00049

PATIENT
  Age: 35 Year
  Sex: Female

DRUGS (1)
  1. EVICEL [Suspect]
     Indication: PTERYGIUM OPERATION

REACTIONS (2)
  - OFF LABEL USE [None]
  - TRANSPLANT FAILURE [None]
